FAERS Safety Report 24839169 (Version 2)
Quarter: 2025Q1

REPORT INFORMATION
  Report Type: Report from Study
  Country: US (occurrence: US)
  Receive Date: 20250114
  Receipt Date: 20250123
  Transmission Date: 20250409
  Serious: Yes (Hospitalization, Other)
  Sender: JAZZ
  Company Number: US-JAZZ PHARMACEUTICALS-2025-US-000626

PATIENT
  Sex: Male

DRUGS (1)
  1. EPIDIOLEX [Suspect]
     Active Substance: CANNABIDIOL
     Indication: Lennox-Gastaut syndrome
     Dosage: 8 MILLILITER, BID
     Route: 048
     Dates: start: 201910

REACTIONS (1)
  - Gallbladder enlargement [Unknown]
